FAERS Safety Report 19603412 (Version 2)
Quarter: 2021Q3

REPORT INFORMATION
  Report Type: Report from Study
  Country: IE (occurrence: IE)
  Receive Date: 20210724
  Receipt Date: 20210930
  Transmission Date: 20211014
  Serious: Yes (Other)
  Sender: FDA-Public Use
  Company Number: IE-TAKEDA-2021TUS045264

PATIENT
  Sex: Male

DRUGS (7)
  1. HUMAN IMMUNOGLOBULIN; HYALURONIDASE [Suspect]
     Active Substance: HUMAN IMMUNOGLOBULIN G\HYALURONIDASE RECOMBINANT HUMAN
     Indication: CHRONIC LYMPHOCYTIC LEUKAEMIA
     Dosage: 35 GRAM, Q4WEEKS
     Route: 058
     Dates: start: 20201028
  2. TRELEGY ELLIPTA [Concomitant]
     Active Substance: FLUTICASONE FUROATE\UMECLIDINIUM BROMIDE\VILANTEROL TRIFENATATE
  3. ATORVASTATIN [Concomitant]
     Active Substance: ATORVASTATIN
     Dosage: 10 MILLIGRAM, QD
     Route: 065
  4. ASPIRIN. [Concomitant]
     Active Substance: ASPIRIN
     Dosage: 75 MILLIGRAM, QD
     Route: 065
  5. TRENTAL [Concomitant]
     Active Substance: PENTOXIFYLLINE
     Dosage: 400 MILLIGRAM, BID
     Route: 065
  6. PRAXILENE [Concomitant]
     Active Substance: NAFRONYL
     Dosage: 100 MILLIGRAM, TID
     Route: 065
  7. OLMESARTAN [Concomitant]
     Active Substance: OLMESARTAN
     Dosage: 20 MILLIGRAM, QD
     Route: 065

REACTIONS (3)
  - Chronic lymphocytic leukaemia [Not Recovered/Not Resolved]
  - Condition aggravated [Unknown]
  - Off label use [Recovered/Resolved]

NARRATIVE: CASE EVENT DATE: 20210714
